FAERS Safety Report 6926432-5 (Version None)
Quarter: 2010Q3

REPORT INFORMATION
  Report Type: 
  Country: None (occurrence: None)
  Receive Date: 20100816
  Receipt Date: 20100803
  Transmission Date: 20110219
  Serious: Yes (Hospitalization, Disabling, Other)
  Sender: FDA-Public Use
  Company Number: BR-BAYER-201016271LA

PATIENT
  Age: 42 Year
  Sex: Male

DRUGS (6)
  1. BETAFERON [Suspect]
     Indication: RELAPSING-REMITTING MULTIPLE SCLEROSIS
     Dosage: BETAJECT
     Route: 058
  2. BETAFERON [Suspect]
     Route: 058
     Dates: start: 20100708
  3. BETAFERON [Suspect]
     Dosage: TOTAL DAILY DOSE: 8 MIU
     Route: 058
     Dates: start: 20070302, end: 20091001
  4. AZATIOPRIN [Concomitant]
     Indication: BIPOLAR DISORDER
     Dosage: 1 TABLET / DAY
     Route: 048
     Dates: start: 20070801, end: 20080801
  5. CARBAMAZEPINE [Concomitant]
     Indication: BIPOLAR DISORDER
     Dosage: 4 TABLETS / DAY
     Route: 048
     Dates: start: 20070801, end: 20100501
  6. IBUPROFENO [Concomitant]
     Indication: PREMEDICATION
     Route: 048
     Dates: start: 20070101

REACTIONS (14)
  - BALANCE DISORDER [None]
  - BLINDNESS [None]
  - CHILLS [None]
  - DEPRESSION [None]
  - HEADACHE [None]
  - MOTOR DYSFUNCTION [None]
  - MULTIPLE SCLEROSIS [None]
  - MULTIPLE SCLEROSIS RELAPSE [None]
  - MUSCLE SPASMS [None]
  - MUSCULAR WEAKNESS [None]
  - PAIN [None]
  - PYREXIA [None]
  - SYNCOPE [None]
  - UNEVALUABLE EVENT [None]
